FAERS Safety Report 8895743 (Version 2)
Quarter: 2012Q4

REPORT INFORMATION
  Report Type: Report from Study
  Country: BR (occurrence: BR)
  Receive Date: 20121108
  Receipt Date: 20121121
  Transmission Date: 20130627
  Serious: No
  Sender: FDA-Public Use
  Company Number: BR-ROCHE-1151632

PATIENT
  Sex: Male
  Weight: 85 kg

DRUGS (4)
  1. RITUXIMAB [Suspect]
     Indication: RHEUMATOID ARTHRITIS
     Route: 042
     Dates: start: 20120531
  2. ENALAPRIL MALEATE [Concomitant]
     Dosage: brand name: Enalabal
     Route: 065
  3. ULTRACET [Concomitant]
  4. OMEPRAZOLE [Concomitant]

REACTIONS (1)
  - Gait disturbance [Unknown]
